FAERS Safety Report 17137563 (Version 1)
Quarter: 2019Q4

REPORT INFORMATION
  Report Type: Spontaneous
  Country: US (occurrence: US)
  Receive Date: 20191118
  Receipt Date: 20191118
  Transmission Date: 20200122
  Serious: Yes (Death)
  Sender: FDA-Public Use
  Company Number: None

PATIENT
  Age: 58 Year
  Sex: Male
  Weight: 99.34 kg

DRUGS (25)
  1. XGEVA [Suspect]
     Active Substance: DENOSUMAB
     Indication: PROSTATE CANCER
     Route: 058
     Dates: start: 20171205, end: 20191007
  2. ATIVAN [Concomitant]
     Active Substance: LORAZEPAM
  3. ZOFRAN [Concomitant]
     Active Substance: ONDANSETRON HYDROCHLORIDE
  4. XTANDI [Concomitant]
     Active Substance: ENZALUTAMIDE
  5. TAMSULOSIN [Concomitant]
     Active Substance: TAMSULOSIN
  6. CALCITRIOL. [Concomitant]
     Active Substance: CALCITRIOL
  7. FIRMAGON [Concomitant]
     Active Substance: DEGARELIX ACETATE
  8. GABAPENTIN. [Concomitant]
     Active Substance: GABAPENTIN
  9. PROCHORPERAZINE [Concomitant]
  10. ZOLPIDEM [Concomitant]
     Active Substance: ZOLPIDEM TARTRATE
  11. MODAFINIL. [Concomitant]
     Active Substance: MODAFINIL
  12. ACETAMINOPHEN. [Concomitant]
     Active Substance: ACETAMINOPHEN
  13. PROPRANOLOL [Concomitant]
     Active Substance: PROPRANOLOL HYDROCHLORIDE
  14. MULTIVITAMIN [Concomitant]
     Active Substance: VITAMINS
  15. SENNA-S [Concomitant]
     Active Substance: DOCUSATE SODIUM\SENNOSIDES
  16. NIACIN ER [Concomitant]
     Active Substance: NIACIN
  17. MORPHINE SULFATE INJ [Concomitant]
  18. MS CONTIN [Concomitant]
     Active Substance: MORPHINE SULFATE
  19. OXYCODONE [Concomitant]
     Active Substance: OXYCODONE
  20. CELEBREX [Concomitant]
     Active Substance: CELECOXIB
  21. FLUCONINONLE [Concomitant]
  22. NEFAZODONE [Concomitant]
     Active Substance: NEFAZODONE
  23. OTEZLA [Concomitant]
     Active Substance: APREMILAST
  24. OMEPRAZOLE. [Concomitant]
     Active Substance: OMEPRAZOLE
  25. DEXAMETHASONE. [Concomitant]
     Active Substance: DEXAMETHASONE

REACTIONS (1)
  - Death [None]

NARRATIVE: CASE EVENT DATE: 20191024
